FAERS Safety Report 22226001 (Version 3)
Quarter: 2023Q2

REPORT INFORMATION
  Report Type: Spontaneous
  Country: FR (occurrence: FR)
  Receive Date: 20230419
  Receipt Date: 20230601
  Transmission Date: 20230721
  Serious: Yes (Hospitalization, Other)
  Sender: FDA-Public Use
  Company Number: None

PATIENT

DRUGS (9)
  1. BRUKINSA [Suspect]
     Active Substance: ZANUBRUTINIB
     Indication: Waldenstrom^s macroglobulinaemia
     Dosage: 4 DOSAGE FORM(320MG), DAILY
     Route: 048
     Dates: start: 20220803, end: 20230209
  2. BACTRIM [Concomitant]
     Active Substance: SULFAMETHOXAZOLE\TRIMETHOPRIM
     Indication: Opportunistic infection prophylaxis
     Dosage: 3 DOSAGE FORM, WEEKLY
     Route: 048
  3. VALACYCLOVIR [Concomitant]
     Active Substance: VALACYCLOVIR HYDROCHLORIDE
     Indication: Opportunistic infection prophylaxis
     Dosage: 2 DOSAGE FORM, DAILY
     Route: 048
  4. FUROSEMIDE [Concomitant]
     Active Substance: FUROSEMIDE
     Indication: Cardiac failure
     Dosage: 1 DOSAGE FORM,DAILY
     Route: 048
  5. PANTOPRAZOLE SODIUM [Concomitant]
     Active Substance: PANTOPRAZOLE SODIUM
     Indication: Gastritis prophylaxis
     Dosage: 1 DOSAGE FORM, DAILY
     Route: 048
  6. POTASSIUM CHLORIDE [Concomitant]
     Active Substance: POTASSIUM CHLORIDE
     Indication: Drug toxicity prophylaxis
     Dosage: 1 DOSAGE FORM, DAILY
     Route: 048
  7. LEUCOVORIN CALCIUM [Concomitant]
     Active Substance: LEUCOVORIN CALCIUM
     Indication: Drug toxicity prophylaxis
     Dosage: 1 DOSAGE FORM, WEEKLY
     Route: 048
  8. SILODOSIN [Concomitant]
     Active Substance: SILODOSIN
     Indication: Benign prostatic hyperplasia
     Dosage: 1 DOSAGE FORM, DAILY
     Route: 048
  9. Previscan [Concomitant]
     Indication: Thrombosis prophylaxis
     Dosage: 0.5 DOSAGE FORM, DAILY
     Route: 048

REACTIONS (11)
  - Pleural effusion [Recovered/Resolved]
  - Condition aggravated [Recovered/Resolved]
  - Pulmonary haemorrhage [Unknown]
  - Haemothorax [Unknown]
  - Atelectasis [Unknown]
  - Lymphadenopathy [Unknown]
  - Bronchial disorder [Unknown]
  - Emphysema [Unknown]
  - Pleurisy [Unknown]
  - Pleural calcification [Unknown]
  - Dyspnoea exertional [Unknown]

NARRATIVE: CASE EVENT DATE: 20230208
